FAERS Safety Report 16122275 (Version 1)
Quarter: 2019Q1

REPORT INFORMATION
  Report Type: Spontaneous
  Country: IT (occurrence: IT)
  Receive Date: 20190327
  Receipt Date: 20190327
  Transmission Date: 20190418
  Serious: Yes (Other)
  Sender: FDA-Public Use
  Company Number: IT-009507513-1903ITA009867

PATIENT
  Age: 29 Year
  Sex: Male

DRUGS (2)
  1. MITOTANE [Suspect]
     Active Substance: MITOTANE
     Indication: ADRENOCORTICAL CARCINOMA
  2. PEMBROLIZUMAB. [Suspect]
     Active Substance: PEMBROLIZUMAB
     Indication: ADRENOCORTICAL CARCINOMA
     Dosage: 200 MILLIGRAM, Q3W

REACTIONS (4)
  - Hyperbilirubinaemia [Unknown]
  - Immune-mediated adverse reaction [Unknown]
  - Hepatotoxicity [Recovered/Resolved]
  - Off label use [Unknown]
